FAERS Safety Report 19059497 (Version 1)
Quarter: 2021Q1

REPORT INFORMATION
  Report Type: Spontaneous
  Country: US (occurrence: US)
  Receive Date: 20210326
  Receipt Date: 20210326
  Transmission Date: 20210420
  Serious: No
  Sender: FDA-Public Use
  Company Number: US-ELI_LILLY_AND_COMPANY-US202103011144

PATIENT
  Sex: Female

DRUGS (6)
  1. BASAGLAR [Suspect]
     Active Substance: INSULIN GLARGINE
     Dosage: 32 U, BID (MORNING AND EVENING)
     Route: 065
  2. BASAGLAR [Suspect]
     Active Substance: INSULIN GLARGINE
     Indication: PRODUCT USED FOR UNKNOWN INDICATION
     Dosage: 32 U, BID (MORNING AND EVENING)
     Route: 065
  3. BASAGLAR [Suspect]
     Active Substance: INSULIN GLARGINE
     Indication: PRODUCT USED FOR UNKNOWN INDICATION
     Dosage: 32 U, BID (MORNING AND EVENING)
     Route: 065
  4. BASAGLAR [Suspect]
     Active Substance: INSULIN GLARGINE
     Dosage: 32 U, BID (MORNING AND EVENING)
     Route: 065
  5. BASAGLAR [Suspect]
     Active Substance: INSULIN GLARGINE
     Dosage: 32 U, BID (MORNING AND EVENING)
     Route: 065
  6. BASAGLAR [Suspect]
     Active Substance: INSULIN GLARGINE
     Dosage: 32 U, BID (MORNING AND EVENING)
     Route: 065

REACTIONS (2)
  - Inappropriate schedule of product administration [Unknown]
  - Visual impairment [Unknown]
